FAERS Safety Report 4349487-3 (Version None)
Quarter: 2004Q2

REPORT INFORMATION
  Report Type: 
  Country: None (occurrence: None)
  Receive Date: 20040426
  Receipt Date: 20040419
  Transmission Date: 20050107
  Serious: Yes (Life-Threatening)
  Sender: FDA-Public Use
  Company Number: 2004GB00941

PATIENT
  Age: 25 Year
  Sex: Female

DRUGS (1)
  1. ESOMEPRAZOLE [Suspect]
     Indication: GASTROOESOPHAGEAL REFLUX DISEASE
     Dosage: 40 MG QD PO
     Route: 048
     Dates: start: 20040329, end: 20040329

REACTIONS (1)
  - ANAPHYLACTIC SHOCK [None]
